FAERS Safety Report 5259656-6 (Version None)
Quarter: 2007Q1

REPORT INFORMATION
  Report Type: 
  Country: None (occurrence: None)
  Receive Date: 20070307
  Receipt Date: 20070307
  Transmission Date: 20070707
  Serious: Yes (Other)
  Sender: FDA-Public Use
  Company Number: None

PATIENT
  Age: 10 Year
  Sex: Female
  Weight: 45.3597 kg

DRUGS (2)
  1. MOTRIN [Suspect]
     Indication: PYREXIA
     Dosage: AS RECOMMENDED BY WEIGHT
  2. IBUPROFEN [Suspect]
     Indication: PAIN

REACTIONS (2)
  - LIP SWELLING [None]
  - SWELLING FACE [None]
